FAERS Safety Report 21060697 (Version 1)
Quarter: 2022Q3

REPORT INFORMATION
  Report Type: Other
  Country: CH (occurrence: None)
  Receive Date: 20220708
  Receipt Date: 20220708
  Transmission Date: 20221027
  Serious: Yes (Death)
  Sender: FDA-Public Use
  Company Number: CH-ROCHE-3133939

PATIENT
  Age: 68 Year
  Sex: Female

DRUGS (3)
  1. ALECTINIB [Suspect]
     Active Substance: ALECTINIB
     Indication: Neuroendocrine carcinoma
     Route: 065
  2. CARBOPLATIN [Concomitant]
     Active Substance: CARBOPLATIN
     Indication: Neuroendocrine carcinoma
     Dosage: FIRST LINE CHEMOTHERAPY, COMPLETED 6 CYCLES
  3. ETOPOSIDE [Concomitant]
     Active Substance: ETOPOSIDE
     Indication: Neuroendocrine carcinoma
     Dosage: FIRST LINE CHEMOTHERAPY, COMPLETED 6 CYCLES

REACTIONS (2)
  - Disease progression [Fatal]
  - Drug ineffective [Unknown]
